FAERS Safety Report 4947782-8 (Version None)
Quarter: 2006Q1

REPORT INFORMATION
  Report Type: 
  Country: None (occurrence: None)
  Receive Date: 20060320
  Receipt Date: 20060308
  Transmission Date: 20060701
  Serious: Yes (Other)
  Sender: FDA-Public Use
  Company Number: GB-GILEAD-2006-0009306

PATIENT
  Age: 37 Year
  Sex: Male

DRUGS (2)
  1. TRUVADA [Suspect]
  2. EFAVIRENZ [Concomitant]

REACTIONS (1)
  - DIABETES MELLITUS [None]
